FAERS Safety Report 14971500 (Version 1)
Quarter: 2018Q2

REPORT INFORMATION
  Report Type: Report from Study
  Country: ZA (occurrence: ZA)
  Receive Date: 20180604
  Receipt Date: 20180604
  Transmission Date: 20180711
  Serious: Yes (Death)
  Sender: FDA-Public Use
  Company Number: PHHY2018ZA014889

PATIENT
  Age: 56 Year
  Sex: Male

DRUGS (1)
  1. HEXA-BLOK [Suspect]
     Active Substance: ATENOLOL
     Indication: HYPERTENSION
     Dosage: 50 MG, UNK
     Route: 048
     Dates: start: 20180514

REACTIONS (1)
  - Death [Fatal]

NARRATIVE: CASE EVENT DATE: 20180514
